FAERS Safety Report 20020620 (Version 2)
Quarter: 2021Q4

REPORT INFORMATION
  Report Type: Report from Study
  Country: IN (occurrence: IN)
  Receive Date: 20211101
  Receipt Date: 20211109
  Transmission Date: 20220303
  Serious: Yes (Other)
  Sender: FDA-Public Use
  Company Number: IN-NOVARTISPH-NVSC2021IN245795

PATIENT
  Age: 56 Year
  Sex: Male
  Weight: 50 kg

DRUGS (1)
  1. TRAVATAN [Suspect]
     Active Substance: TRAVOPROST
     Indication: Glaucoma
     Dosage: 1 DF, QD
     Route: 047
     Dates: start: 20210410

REACTIONS (1)
  - Blindness [Not Recovered/Not Resolved]
